FAERS Safety Report 19796500 (Version 2)
Quarter: 2022Q1

REPORT INFORMATION
  Report Type: Spontaneous
  Country: US (occurrence: US)
  Receive Date: 20210907
  Receipt Date: 20220316
  Transmission Date: 20220424
  Serious: Yes (Other)
  Sender: FDA-Public Use
  Company Number: US-GLAXOSMITHKLINE-US2021GSK188275

PATIENT
  Sex: Female

DRUGS (12)
  1. ZANTAC [Suspect]
     Active Substance: RANITIDINE HYDROCHLORIDE
     Indication: Gastrooesophageal reflux disease
     Dosage: 150 MG, WE
     Route: 065
     Dates: start: 199601, end: 201801
  2. ZANTAC [Suspect]
     Active Substance: RANITIDINE HYDROCHLORIDE
     Indication: Irritable bowel syndrome
     Dosage: 150 MG, 2-3 TIMES/WEEK
     Route: 065
     Dates: start: 199601, end: 201801
  3. ZANTAC [Suspect]
     Active Substance: RANITIDINE HYDROCHLORIDE
     Indication: Gastrooesophageal reflux disease
     Dosage: 150 MG, WE
     Route: 065
     Dates: start: 199601, end: 201801
  4. ZANTAC [Suspect]
     Active Substance: RANITIDINE HYDROCHLORIDE
     Indication: Irritable bowel syndrome
     Dosage: 150 MG, 2-3 TIMES/WEEK
     Route: 065
     Dates: start: 199601, end: 201801
  5. RANITIDINE [Suspect]
     Active Substance: RANITIDINE
     Indication: Gastrooesophageal reflux disease
     Dosage: 75 MG, WE
     Route: 065
     Dates: start: 200001, end: 201801
  6. RANITIDINE [Suspect]
     Active Substance: RANITIDINE
     Indication: Irritable bowel syndrome
     Dosage: 150 MG, WE
     Route: 065
     Dates: start: 200001, end: 201801
  7. RANITIDINE [Suspect]
     Active Substance: RANITIDINE
     Dosage: 75 MG, 2-3 TIMES A WEEK
     Route: 065
     Dates: start: 200001, end: 201801
  8. RANITIDINE [Suspect]
     Active Substance: RANITIDINE
     Dosage: 150 MG, 2-3 TIMES A WEEK
     Route: 065
     Dates: start: 200001, end: 201801
  9. RANITIDINE [Suspect]
     Active Substance: RANITIDINE
     Indication: Gastrooesophageal reflux disease
     Dosage: 75 MG, WE
     Route: 065
     Dates: start: 200001, end: 201801
  10. RANITIDINE [Suspect]
     Active Substance: RANITIDINE
     Indication: Irritable bowel syndrome
     Dosage: 150 MG, WE
     Route: 065
     Dates: start: 200001, end: 201801
  11. RANITIDINE [Suspect]
     Active Substance: RANITIDINE
     Dosage: 75 MG, 2-3 TIMES A WEEK
     Route: 065
     Dates: start: 200001, end: 201801
  12. RANITIDINE [Suspect]
     Active Substance: RANITIDINE
     Dosage: 150 MG, 2-3 TIMES A WEEK
     Route: 065
     Dates: start: 200001, end: 201801

REACTIONS (1)
  - Breast cancer [Unknown]
